FAERS Safety Report 15609890 (Version 1)
Quarter: 2018Q4

REPORT INFORMATION
  Report Type: Spontaneous
  Country: DE (occurrence: DE)
  Receive Date: 20181113
  Receipt Date: 20181113
  Transmission Date: 20190205
  Serious: Yes (Hospitalization)
  Sender: FDA-Public Use
  Company Number: DE-ACCORD-091903

PATIENT
  Age: 26 Year
  Sex: Female
  Weight: 100 kg

DRUGS (2)
  1. METHOTREXATE. [Suspect]
     Active Substance: METHOTREXATE
     Indication: T-CELL TYPE ACUTE LEUKAEMIA
     Dates: start: 20180220, end: 20180222
  2. HERBAL EXTRACT NOS [Interacting]
     Active Substance: HERBALS
     Indication: ABDOMINAL DISCOMFORT
     Dates: start: 20180216, end: 20180218

REACTIONS (3)
  - Drug level increased [Unknown]
  - Drug interaction [Unknown]
  - Hepatotoxicity [Unknown]

NARRATIVE: CASE EVENT DATE: 201802
